FAERS Safety Report 24555741 (Version 3)
Quarter: 2025Q3

REPORT INFORMATION
  Report Type: Report from Study
  Country: US (occurrence: US)
  Receive Date: 20241028
  Receipt Date: 20250809
  Transmission Date: 20251021
  Serious: Yes (Life-Threatening, Other)
  Sender: ALEXION PHARMACEUTICALS
  Company Number: US-AstraZeneca-2024A183761

PATIENT
  Age: 75 Year
  Sex: Female
  Weight: 63.492 kg

DRUGS (2)
  1. TAGRISSO [Suspect]
     Active Substance: OSIMERTINIB
     Dosage: 80 MILLIGRAM, QD
  2. TAGRISSO [Suspect]
     Active Substance: OSIMERTINIB
     Dosage: 40 MILLIGRAM, QW

REACTIONS (8)
  - Metastasis [Unknown]
  - Drug ineffective [Unknown]
  - Product tampering [Unknown]
  - Weight decreased [Unknown]
  - Fatigue [Unknown]
  - Adverse drug reaction [Unknown]
  - Product use issue [Unknown]
  - Pruritus [Unknown]
